FAERS Safety Report 26134766 (Version 1)
Quarter: 2025Q4

REPORT INFORMATION
  Report Type: Spontaneous
  Country: US (occurrence: US)
  Receive Date: 20251209
  Receipt Date: 20251209
  Transmission Date: 20260118
  Serious: No
  Sender: AUROBINDO
  Company Number: US-AUROBINDO-AUR-APL-2025-020698

PATIENT
  Sex: Male

DRUGS (1)
  1. MIRTAZAPINE [Suspect]
     Active Substance: MIRTAZAPINE
     Indication: Product used for unknown indication
     Dosage: UNK, WEEK AGO
     Route: 065

REACTIONS (12)
  - Nausea [Unknown]
  - Palpitations [Unknown]
  - Fatigue [Unknown]
  - Malaise [Unknown]
  - Abdominal discomfort [Unknown]
  - Nasopharyngitis [Unknown]
  - Dizziness [Unknown]
  - Malaise [Unknown]
  - Product taste abnormal [Unknown]
  - Product odour abnormal [Unknown]
  - Suspected product contamination [Unknown]
  - Product substitution issue [Unknown]
